FAERS Safety Report 14763862 (Version 1)
Quarter: 2018Q2

REPORT INFORMATION
  Report Type: Spontaneous
  Country: IE (occurrence: IE)
  Receive Date: 20180416
  Receipt Date: 20180416
  Transmission Date: 20180711
  Serious: Yes (Life-Threatening, Hospitalization, Disabling, Other)
  Sender: FDA-Public Use
  Company Number: IE-HORIZON-VIM-0071-2018

PATIENT
  Age: 52 Year
  Sex: Male

DRUGS (2)
  1. TRAMADOL. [Concomitant]
     Active Substance: TRAMADOL
     Indication: PAIN
     Dosage: 50-100 MG UP TO TDS, EVERY EIGHT HOURS
     Dates: start: 20170915, end: 20171006
  2. VIMOVO [Suspect]
     Active Substance: ESOMEPRAZOLE MAGNESIUM\NAPROXEN
     Indication: PAIN
     Dosage: 1 TABLET BID
     Route: 048
     Dates: start: 20170915, end: 20171006

REACTIONS (6)
  - Tachycardia [Recovered/Resolved]
  - Anaphylactic reaction [Recovered/Resolved]
  - Acute respiratory distress syndrome [Recovered/Resolved]
  - Hyperhidrosis [Recovered/Resolved]
  - Livedo reticularis [Recovered/Resolved]
  - Septic shock [Recovered/Resolved]

NARRATIVE: CASE EVENT DATE: 20171006
